APPROVED DRUG PRODUCT: HEPARIN SODIUM 2,000 UNITS IN SODIUM CHLORIDE 0.9% IN PLASTIC CONTAINER
Active Ingredient: HEPARIN SODIUM
Strength: 200 UNITS/100ML
Dosage Form/Route: INJECTABLE;INJECTION
Application: A212441 | Product #002 | TE Code: AP
Applicant: FRESENIUS KABI USA LLC
Approved: Jul 24, 2020 | RLD: No | RS: No | Type: RX